FAERS Safety Report 7982490-0 (Version None)
Quarter: 2011Q4

REPORT INFORMATION
  Report Type: 
  Country: None (occurrence: None)
  Receive Date: 20111215
  Receipt Date: 20111208
  Transmission Date: 20120403
  Serious: Yes (Other)
  Sender: FDA-Public Use
  Company Number: JP-ROCHE-1014920

PATIENT
  Sex: Male

DRUGS (12)
  1. ASPIRIN [Concomitant]
     Route: 048
  2. LOXONIN [Concomitant]
     Route: 061
  3. ARGAMATE [Concomitant]
     Route: 048
  4. SODIUM BICARBONATE [Concomitant]
     Route: 048
  5. ALLOPURINOL [Concomitant]
     Route: 048
  6. CANDESARTAN CILEXETIL [Concomitant]
     Indication: HYPERTENSION
     Route: 048
  7. NORVASC [Concomitant]
     Indication: HYPERTENSION
     Route: 048
  8. ANPLAG [Concomitant]
     Route: 048
  9. ISOSORBIDE MONONITRATE [Concomitant]
     Indication: HYPERTENSION
     Route: 048
  10. LIPITOR [Concomitant]
     Indication: HYPERTENSION
     Route: 048
  11. ACTEMRA [Suspect]
     Indication: PRODUCT USED FOR UNKNOWN INDICATION
     Dosage: DOSAGE IS UNCERTAIN.
     Route: 041
  12. BASEN [Concomitant]
     Indication: DIABETES MELLITUS
     Route: 048

REACTIONS (1)
  - RENAL IMPAIRMENT [None]
